FAERS Safety Report 9410752 (Version 1)
Quarter: 2013Q3

REPORT INFORMATION
  Report Type: Report from Study
  Country: CA (occurrence: CA)
  Receive Date: 20130712
  Receipt Date: 20130712
  Transmission Date: 20140515
  Serious: Yes (Other)
  Sender: FDA-Public Use
  Company Number: CA-JNJFOC-20130706122

PATIENT
  Age: 46 Year
  Sex: Female
  Weight: 54.7 kg

DRUGS (4)
  1. REMICADE [Suspect]
     Indication: ANKYLOSING SPONDYLITIS
     Route: 042
     Dates: start: 20120704
  2. REMICADE [Suspect]
     Indication: ANKYLOSING SPONDYLITIS
     Route: 042
     Dates: start: 20120604
  3. ALENDRONATE [Concomitant]
     Indication: OSTEOPOROSIS
     Route: 065
  4. TEMAZEPAM [Concomitant]
     Indication: SLEEP DISORDER
     Route: 065

REACTIONS (3)
  - Syncope [Recovered/Resolved]
  - Blood pressure decreased [Recovering/Resolving]
  - Heart rate decreased [Recovering/Resolving]
